FAERS Safety Report 19011649 (Version 1)
Quarter: 2021Q1

REPORT INFORMATION
  Report Type: Spontaneous
  Country: IT (occurrence: IT)
  Receive Date: 20210316
  Receipt Date: 20210316
  Transmission Date: 20210420
  Serious: Yes (Hospitalization)
  Sender: FDA-Public Use
  Company Number: IT-TEVA-2021-IT-1890165

PATIENT
  Age: 75 Year
  Sex: Male
  Weight: 70 kg

DRUGS (5)
  1. CARDURA [Concomitant]
     Active Substance: DOXAZOSIN MESYLATE
  2. CONGESCOR 2,5 MG, COMPRESSE FILM?RIVESTITE [Concomitant]
  3. EUTIROX 125 MICROGRAMMI COMPRESSE [Concomitant]
  4. AMIODARONE [Suspect]
     Active Substance: AMIODARONE
     Dosage: UNIT DOSE: 200 MILLIGRAM
     Route: 048
     Dates: start: 20210101, end: 20210104
  5. LERCADIP 20 MG COMPRESSE RIVESTITE CON FILM [Concomitant]

REACTIONS (2)
  - Tremor [Recovering/Resolving]
  - Tachycardia [Recovering/Resolving]

NARRATIVE: CASE EVENT DATE: 20210101
